FAERS Safety Report 8774046 (Version 2)
Quarter: 2012Q4

REPORT INFORMATION
  Report Type: Report from Study
  Country: JP (occurrence: JP)
  Receive Date: 20120907
  Receipt Date: 20121010
  Transmission Date: 20130627
  Serious: Yes (Hospitalization, Other)
  Sender: FDA-Public Use
  Company Number: JP-JNJFOC-20120403271

PATIENT
  Age: 86 Year
  Sex: Female
  Weight: 42 kg

DRUGS (20)
  1. SIMPONI [Suspect]
     Indication: RHEUMATOID ARTHRITIS
     Route: 058
     Dates: start: 20120227, end: 20120326
  2. SIMPONI [Suspect]
     Indication: RHEUMATOID ARTHRITIS
     Route: 058
     Dates: start: 20120130
  3. SIMPONI [Suspect]
     Indication: RHEUMATOID ARTHRITIS
     Route: 058
  4. RHEUMATREX [Suspect]
     Indication: RHEUMATOID ARTHRITIS
     Route: 048
     Dates: start: 20120516, end: 20120613
  5. RHEUMATREX [Suspect]
     Indication: RHEUMATOID ARTHRITIS
     Route: 048
     Dates: start: 20120423, end: 20120515
  6. PREDONINE [Suspect]
     Indication: RHEUMATOID ARTHRITIS
     Route: 048
     Dates: start: 20120316, end: 20120423
  7. PREDONINE [Suspect]
     Indication: RHEUMATOID ARTHRITIS
     Route: 048
     Dates: start: 20120618
  8. PREDONINE [Suspect]
     Indication: RHEUMATOID ARTHRITIS
     Route: 048
     Dates: start: 20120424, end: 20120617
  9. PREDONINE [Suspect]
     Indication: RHEUMATOID ARTHRITIS
     Route: 048
     Dates: start: 20120214, end: 20120315
  10. PREDONINE [Suspect]
     Indication: RHEUMATOID ARTHRITIS
     Route: 048
     Dates: start: 20120113, end: 20120213
  11. VOLTAREN SR [Suspect]
     Indication: RHEUMATOID ARTHRITIS
     Route: 048
     Dates: start: 20120313, end: 20120515
  12. ACETAMINOPHEN [Concomitant]
     Indication: RHEUMATOID ARTHRITIS
     Dates: end: 20120623
  13. CELECOXIB [Concomitant]
     Indication: RHEUMATOID ARTHRITIS
     Route: 048
     Dates: end: 20120312
  14. CELECOXIB [Concomitant]
     Indication: RHEUMATOID ARTHRITIS
     Route: 048
     Dates: start: 20120516, end: 20120623
  15. SODIUM RABEPRAZOLE [Concomitant]
     Indication: PROPHYLAXIS
     Route: 048
  16. AMLODIPINE BESILATE [Concomitant]
     Indication: HYPERTENSION
     Route: 048
  17. EVISTA [Concomitant]
     Indication: PROPHYLAXIS
     Route: 048
  18. BACTRIM (SULFAMETHOXAZOLE TRIMETHOPRIM) [Concomitant]
     Indication: PROPHYLAXIS
     Route: 048
  19. SENNA [Concomitant]
     Indication: CONSTIPATION
     Route: 048
  20. TACROLIMUS HYDRATE [Concomitant]
     Indication: RHEUMATOID ARTHRITIS
     Dates: start: 20120524, end: 20120613

REACTIONS (5)
  - Herpes zoster [Recovering/Resolving]
  - Decreased appetite [Not Recovered/Not Resolved]
  - Renal impairment [Recovered/Resolved]
  - Drug ineffective [Unknown]
  - Rheumatoid arthritis [Recovering/Resolving]
